FAERS Safety Report 24459165 (Version 1)
Quarter: 2024Q4

REPORT INFORMATION
  Report Type: Report from Study
  Country: JP (occurrence: JP)
  Receive Date: 20241018
  Receipt Date: 20241018
  Transmission Date: 20250115
  Serious: No
  Sender: ROCHE
  Company Number: JP-ROCHE-3522535

PATIENT
  Age: 20 Year
  Sex: Female
  Weight: 58.0 kg

DRUGS (2)
  1. RITUXAN [Suspect]
     Active Substance: RITUXIMAB
     Indication: Systemic scleroderma
     Dosage: MOST RECENT DOSE ON: 15/SEP/2023, 21/SEP/2023, 26/SEP/2023, 28/SEP/2023
     Route: 041
     Dates: start: 20230905
  2. NINTEDANIB ESYLATE [Concomitant]
     Active Substance: NINTEDANIB ESYLATE
     Route: 048
     Dates: start: 20230906

REACTIONS (2)
  - Infusion related reaction [Recovering/Resolving]
  - White blood cell count decreased [Recovering/Resolving]

NARRATIVE: CASE EVENT DATE: 20230905
